FAERS Safety Report 6318044-1 (Version None)
Quarter: 2009Q3

REPORT INFORMATION
  Report Type: 
  Country: None (occurrence: None)
  Receive Date: 20090821
  Receipt Date: 20090810
  Transmission Date: 20100115
  Serious: Yes (Life-Threatening, Hospitalization)
  Sender: FDA-Public Use
  Company Number: JP-PFIZER INC-2009248903

PATIENT
  Age: 77 Year

DRUGS (5)
  1. CAMPTOSAR [Suspect]
     Indication: PANCREATIC CARCINOMA
     Dosage: 100 MG/M2
     Route: 041
     Dates: start: 20090626, end: 20090710
  2. TS-1 [Suspect]
     Indication: PANCREATIC CARCINOMA
     Dosage: 60 MG, 2X/DAY
     Route: 048
     Dates: start: 20090626, end: 20090710
  3. AMLODIPINE [Concomitant]
     Indication: HYPERTENSION
     Dosage: 2.5 MG, 2X/DAY
     Route: 048
  4. GASMOTIN [Concomitant]
     Indication: NAUSEA
     Dosage: 5 MG, 3X/DAY
     Route: 048
     Dates: start: 20090719
  5. CEROCRAL [Concomitant]
     Dosage: 20 MG, 2X/DAY
     Route: 048

REACTIONS (10)
  - DECREASED APPETITE [None]
  - DEHYDRATION [None]
  - DISSEMINATED INTRAVASCULAR COAGULATION [None]
  - HYPERGLYCAEMIA [None]
  - INTESTINAL PERFORATION [None]
  - MALAISE [None]
  - PERITONITIS [None]
  - RENAL FAILURE ACUTE [None]
  - SUBCLAVIAN VEIN THROMBOSIS [None]
  - UPPER GASTROINTESTINAL HAEMORRHAGE [None]
